FAERS Safety Report 10977547 (Version 1)
Quarter: 2015Q2

REPORT INFORMATION
  Report Type: Spontaneous
  Country: GB (occurrence: GB)
  Receive Date: 20150402
  Receipt Date: 20150402
  Transmission Date: 20150821
  Serious: Yes (Disabling)
  Sender: FDA-Public Use
  Company Number: GB-TEVA-550832ACC

PATIENT
  Age: 100 Year
  Sex: Female
  Weight: 61 kg

DRUGS (6)
  1. DIMETICONE [Concomitant]
     Active Substance: DIMETHICONE
     Dosage: APPLY AS DIRECTED
     Dates: start: 20141215
  2. TIMOLOL [Concomitant]
     Active Substance: TIMOLOL
     Dosage: 2 GTT DAILY; ONE DROP INTO EACH EYE
     Route: 050
     Dates: start: 20141110
  3. FLUOXETINE [Suspect]
     Active Substance: FLUOXETINE\FLUOXETINE HYDROCHLORIDE
     Dosage: 1 DOSAGE FORMS DAILY;
     Dates: start: 20150224
  4. GLYCERYL TRINITRATE [Concomitant]
     Active Substance: NITROGLYCERIN
     Dosage: ONE PUFF UNDER THE TONGUE AS NEEDED (FOR CHEST ...
     Dates: start: 20140915
  5. PARACETAMOL [Concomitant]
     Active Substance: ACETAMINOPHEN
     Dosage: TAKE 2 4 TIMES/DAY WHEN REQUIRED
     Dates: start: 20141211
  6. CLENIL MODULITE [Concomitant]
     Active Substance: BECLOMETHASONE DIPROPIONATE
     Dosage: 4 DOSAGE FORMS DAILY;
     Route: 055
     Dates: start: 20141110

REACTIONS (2)
  - Somnolence [Recovered/Resolved]
  - Confusional state [Recovered/Resolved]

NARRATIVE: CASE EVENT DATE: 20150318
